FAERS Safety Report 9053757 (Version 1)
Quarter: 2013Q1

REPORT INFORMATION
  Report Type: Spontaneous
  Country: US (occurrence: None)
  Receive Date: 20130117
  Receipt Date: 20130117
  Transmission Date: 20140127
  Serious: Yes (Other)
  Sender: FDA-Public Use
  Company Number: DSA_61883_2013

PATIENT
  Sex: Male

DRUGS (5)
  1. WELLBUTRIN [Suspect]
     Indication: DEPRESSION
     Dosage: (DF) ( UNKNOWN UNTIL NOT CONTINUING)?
  2. ZOLOFT [Suspect]
     Indication: DEPRESSION
     Dosage: (DF) (UNKNOWN AND UNTIL NOT CONTINUING)
  3. CONCERTA [Suspect]
     Indication: FATIGUE
  4. CONCERTA [Suspect]
     Indication: DISTURBANCE IN ATTENTION
  5. KLONOPIN [Suspect]
     Indication: ANXIETY
     Dosage: 1 MG. , ONE DOSE TO 4 TIMES DAILY AS NEEDED)

REACTIONS (4)
  - Pituitary tumour [None]
  - Peyronie^s disease [None]
  - Erectile dysfunction [None]
  - Loss of libido [None]
